FAERS Safety Report 21572813 (Version 4)
Quarter: 2023Q2

REPORT INFORMATION
  Report Type: Spontaneous
  Country: US (occurrence: US)
  Receive Date: 20221109
  Receipt Date: 20230426
  Transmission Date: 20230722
  Serious: No
  Sender: FDA-Public Use
  Company Number: US-PFIZER INC-PV202200020895

PATIENT
  Age: 70 Year
  Sex: Female

DRUGS (2)
  1. RETACRIT [Suspect]
     Active Substance: EPOETIN ALFA-EPBX
     Indication: Nephrogenic anaemia
     Dosage: 8000 IU
  2. RETACRIT [Suspect]
     Active Substance: EPOETIN ALFA-EPBX
     Dosage: 10000 IU, 2X/WEEK (INJECT 1 ML ( 10,000 UNITS TOTAL) INTO THE VEIN 2 (TWO) TIMES A WEEK)
     Route: 058

REACTIONS (3)
  - Product dispensing error [Unknown]
  - Prescribed overdose [Unknown]
  - Hypoacusis [Unknown]
